FAERS Safety Report 22726571 (Version 6)
Quarter: 2025Q3

REPORT INFORMATION
  Report Type: Report from Study
  Country: US (occurrence: US)
  Receive Date: 20230720
  Receipt Date: 20250922
  Transmission Date: 20251020
  Serious: Yes (Hospitalization, Other)
  Sender: TAKEDA
  Company Number: US-TAKEDA-2023TUS070629

PATIENT
  Sex: Female
  Weight: 68.93 kg

DRUGS (30)
  1. TEDUGLUTIDE [Suspect]
     Active Substance: TEDUGLUTIDE
     Indication: Short-bowel syndrome
     Dosage: 3.5 MILLIGRAM, QD
  2. TEDUGLUTIDE [Suspect]
     Active Substance: TEDUGLUTIDE
     Indication: Essential hypertension
     Dosage: 3.5 MILLIGRAM, QD
  3. TEDUGLUTIDE [Suspect]
     Active Substance: TEDUGLUTIDE
     Indication: Anxiety disorder
     Dosage: 3.5 MILLIGRAM, QD
  4. TEDUGLUTIDE [Suspect]
     Active Substance: TEDUGLUTIDE
     Indication: Cardiac disorder
     Dosage: 3.5 MILLIGRAM, QD
  5. TEDUGLUTIDE [Suspect]
     Active Substance: TEDUGLUTIDE
     Dosage: 3.5 MILLIGRAM, QD
  6. INTRALIPID [Concomitant]
     Active Substance: EGG PHOSPHOLIPIDS\GLYCERIN\SOYBEAN OIL
  7. Butenafine HCL [Concomitant]
  8. BENZOYL PEROXIDE\CLINDAMYCIN [Concomitant]
     Active Substance: BENZOYL PEROXIDE\CLINDAMYCIN
  9. LORAZEPAM [Concomitant]
     Active Substance: LORAZEPAM
  10. QUETIAPINE FUMARATE [Concomitant]
     Active Substance: QUETIAPINE FUMARATE
  11. ESCITALOPRAM OXALATE [Concomitant]
     Active Substance: ESCITALOPRAM OXALATE
  12. ATROPINE\DIPHENOXYLATE [Concomitant]
     Active Substance: ATROPINE\DIPHENOXYLATE
  13. CHOLESTYRAMINE [Concomitant]
     Active Substance: CHOLESTYRAMINE
  14. POTASSIUM CHLORIDE [Concomitant]
     Active Substance: POTASSIUM CHLORIDE
  15. CALCIUM [Concomitant]
     Active Substance: CALCIUM
  16. SPIRONOLACTONE [Concomitant]
     Active Substance: SPIRONOLACTONE
  17. LISINOPRIL [Concomitant]
     Active Substance: LISINOPRIL
  18. IRON [Concomitant]
     Active Substance: IRON
  19. ELIQUIS [Concomitant]
     Active Substance: APIXABAN
  20. METOPROLOL SUCCINATE [Concomitant]
     Active Substance: METOPROLOL SUCCINATE
  21. MAGNESIUM [Concomitant]
     Active Substance: MAGNESIUM
  22. IMODIUM [Concomitant]
     Active Substance: LOPERAMIDE HYDROCHLORIDE
  23. PEPTO-BISMOL [Concomitant]
     Active Substance: BISMUTH SUBSALICYLATE
  24. SACCHAROMYCES CEREVISIAE [Concomitant]
     Active Substance: SACCHAROMYCES CEREVISIAE
  25. ALPRAZOLAM [Concomitant]
     Active Substance: ALPRAZOLAM
  26. BETAMETHASONE DIPROPIONATE [Concomitant]
     Active Substance: BETAMETHASONE DIPROPIONATE
  27. CEFAZOLIN SODIUM [Concomitant]
     Active Substance: CEFAZOLIN SODIUM
  28. TPN [Concomitant]
     Active Substance: AMINO ACIDS\DEXTROSE\ELECTROLYTES NOS\SOYBEAN OIL
  29. AMOXICILLIN [Concomitant]
     Active Substance: AMOXICILLIN
  30. BENZONATATE [Concomitant]
     Active Substance: BENZONATATE

REACTIONS (13)
  - Vascular device infection [Unknown]
  - Urinary tract infection [Unknown]
  - Fall [Unknown]
  - Head injury [Unknown]
  - Faeces discoloured [Unknown]
  - Blood pressure abnormal [Unknown]
  - Hepatic mass [Unknown]
  - Diarrhoea [Unknown]
  - Dairy intolerance [Unknown]
  - Syringe issue [Unknown]
  - Walking aid user [Unknown]
  - Weight fluctuation [Unknown]
  - Sinusitis [Unknown]
